FAERS Safety Report 9624078 (Version 1)
Quarter: 2013Q4

REPORT INFORMATION
  Report Type: Spontaneous
  Country: US (occurrence: US)
  Receive Date: 20131015
  Receipt Date: 20131015
  Transmission Date: 20140711
  Serious: No
  Sender: FDA-Public Use
  Company Number: US-BAUSCH-BL-2013-004246

PATIENT
  Age: 73 Year
  Sex: Female

DRUGS (4)
  1. LATANOPROST OPHTHALMIC SOLUTION 0.005% [Suspect]
     Indication: OPEN ANGLE GLAUCOMA
     Dosage: 1 DROP; DAILY; RIGHT EYE
     Route: 047
     Dates: start: 20130713
  2. LATANOPROST OPHTHALMIC SOLUTION 0.005% [Suspect]
     Dosage: 1 DROP; DAILY; LEFT EYE
     Route: 047
     Dates: start: 20130713
  3. REFRESH LIQUIGEL [Concomitant]
     Indication: DRY EYE
     Dosage: 1 DROP; AS REQUIRED; RIGHT EYE
     Route: 047
  4. REFRESH LIQUIGEL [Concomitant]
     Dosage: 1 DROP; AS REQUIRED; LEFT EYE
     Route: 047

REACTIONS (4)
  - Eyelid oedema [Not Recovered/Not Resolved]
  - Erythema of eyelid [Not Recovered/Not Resolved]
  - Ocular hyperaemia [Not Recovered/Not Resolved]
  - Condition aggravated [Not Recovered/Not Resolved]
